FAERS Safety Report 15110433 (Version 6)
Quarter: 2019Q3

REPORT INFORMATION
  Report Type: Report from Study
  Country: IL (occurrence: IL)
  Receive Date: 20180705
  Receipt Date: 20190812
  Transmission Date: 20191004
  Serious: Yes (Hospitalization, Other)
  Sender: FDA-Public Use
  Company Number: IL-ACTELION-A-CH2018-167457

PATIENT
  Age: 59 Year
  Sex: Female

DRUGS (17)
  1. UPTRAVI [Suspect]
     Active Substance: SELEXIPAG
     Dosage: 1600 MCG, BID
     Route: 048
     Dates: start: 201809
  2. TADALAFIL. [Suspect]
     Active Substance: TADALAFIL
     Indication: PULMONARY ARTERIAL HYPERTENSION
     Dosage: UNK
     Route: 048
     Dates: end: 20190805
  3. OPSUMIT [Suspect]
     Active Substance: MACITENTAN
     Dosage: 10 MG, QD
     Route: 048
     Dates: start: 20180904, end: 20180910
  4. UPTRAVI [Suspect]
     Active Substance: SELEXIPAG
     Dosage: 1600 MCG, BID
     Route: 048
     Dates: start: 20180904, end: 20180910
  5. ALDACTONE [Concomitant]
     Active Substance: SPIRONOLACTONE
  6. MAGNESIUM [Concomitant]
     Active Substance: MAGNESIUM
  7. AVILAC [Concomitant]
  8. NEPRO HP [Concomitant]
  9. UPTRAVI [Suspect]
     Active Substance: SELEXIPAG
     Dosage: UNK
     Route: 048
     Dates: start: 20180423
  10. UPTRAVI [Suspect]
     Active Substance: SELEXIPAG
     Dosage: 1200 MCG, BID
     Route: 048
     Dates: end: 20181020
  11. FOLIC ACID. [Concomitant]
     Active Substance: FOLIC ACID
  12. CALTRATE [Concomitant]
     Active Substance: CALCIUM CARBONATE
  13. OPSUMIT [Suspect]
     Active Substance: MACITENTAN
     Indication: PULMONARY ARTERIAL HYPERTENSION
     Dosage: 10 MG, QD
     Route: 048
     Dates: start: 20180111, end: 20180831
  14. UPTRAVI [Suspect]
     Active Substance: SELEXIPAG
     Indication: PULMONARY ARTERIAL HYPERTENSION
     Dosage: 1600 MCG, BID
     Route: 048
     Dates: start: 20180612, end: 20180831
  15. TADALAFIL. [Suspect]
     Active Substance: TADALAFIL
     Dosage: UNK
     Route: 048
     Dates: start: 20190806
  16. OPSUMIT [Suspect]
     Active Substance: MACITENTAN
     Dosage: 10 MG, QD
     Route: 048
     Dates: start: 201809, end: 20190805
  17. FUSID [Concomitant]

REACTIONS (15)
  - Dyspnoea [Recovered/Resolved]
  - Intestinal obstruction [Recovered/Resolved with Sequelae]
  - Melaena [Recovered/Resolved]
  - Pneumonia [Recovered/Resolved]
  - Abdominal pain [Recovered/Resolved]
  - Viral upper respiratory tract infection [Recovered/Resolved]
  - Haemoglobin decreased [Unknown]
  - Asthenia [Recovered/Resolved]
  - Intestinal operation [Recovered/Resolved with Sequelae]
  - Haematemesis [Recovered/Resolved]
  - Umbilical hernia [Unknown]
  - Gastric varices haemorrhage [Recovered/Resolved]
  - Umbilical hernia repair [Unknown]
  - Transfusion [Unknown]
  - Fatigue [Recovered/Resolved]

NARRATIVE: CASE EVENT DATE: 20180126
